FAERS Safety Report 7319315-2 (Version None)
Quarter: 2011Q1

REPORT INFORMATION
  Report Type: 
  Country: None (occurrence: None)
  Receive Date: 20110214
  Receipt Date: 20110201
  Transmission Date: 20110831
  Serious: Yes (Life-Threatening, Hospitalization)
  Sender: FDA-Public Use
  Company Number: 10-001821

PATIENT
  Age: 29 Year
  Sex: Female
  Weight: 70.3 kg

DRUGS (5)
  1. MULTIVITAMIN [Concomitant]
  2. MINERALS NOS (MINERALS NOS) [Concomitant]
  3. LOESTRIN 24 FE [Suspect]
     Indication: CONTRACEPTION
     Dosage: 20/1000 UG, QD, ORAL
     Route: 048
     Dates: start: 20090901, end: 20100718
  4. FOLIC ACID [Concomitant]
  5. IRON (IRON) [Concomitant]

REACTIONS (7)
  - CEREBROVASCULAR ACCIDENT [None]
  - MENSTRUAL DISORDER [None]
  - TRANSIENT ISCHAEMIC ATTACK [None]
  - NERVOUS SYSTEM DISORDER [None]
  - THYROID CYST [None]
  - BLOOD GLUCOSE DECREASED [None]
  - DEMYELINATION [None]
